FAERS Safety Report 5710298-5 (Version None)
Quarter: 2008Q2

REPORT INFORMATION
  Report Type: 
  Country: None (occurrence: None)
  Receive Date: 20080418
  Receipt Date: 20080406
  Transmission Date: 20081010
  Serious: Yes (Other)
  Sender: FDA-Public Use
  Company Number: US-PFIZER INC-2008024771

PATIENT
  Sex: Female
  Weight: 99.8 kg

DRUGS (11)
  1. CHANTIX [Suspect]
     Indication: SMOKING CESSATION THERAPY
  2. MARIJUANA [Interacting]
     Indication: PAIN
  3. NEURONTIN [Concomitant]
  4. KLONOPIN [Concomitant]
  5. TRAZODONE HCL [Concomitant]
  6. PAXIL [Concomitant]
  7. REMERON [Concomitant]
  8. ADVAIR HFA [Concomitant]
  9. PRILOSEC [Concomitant]
  10. LOVASTATIN [Concomitant]
  11. PREVACID [Concomitant]

REACTIONS (10)
  - ABNORMAL DREAMS [None]
  - CATATONIA [None]
  - DRUG INTERACTION [None]
  - FATIGUE [None]
  - FLATULENCE [None]
  - NAUSEA [None]
  - RASH [None]
  - STRESS [None]
  - SUNBURN [None]
  - WRONG TECHNIQUE IN DRUG USAGE PROCESS [None]
